FAERS Safety Report 10671558 (Version 1)
Quarter: 2014Q4

REPORT INFORMATION
  Report Type: Spontaneous
  Country: US (occurrence: None)
  Receive Date: 20141222
  Receipt Date: 20141222
  Transmission Date: 20150529
  Serious: Yes (Death)
  Sender: FDA-Public Use
  Company Number: None

PATIENT
  Age: 72 Year
  Sex: Male

DRUGS (1)
  1. TEMOZOLEMIDE 180MG TEVA [Suspect]
     Active Substance: TEMOZOLOMIDE
     Indication: BRAIN NEOPLASM MALIGNANT
     Dosage: 540MG?X5 DAYS PER CYCLE?QD?ORAL
     Route: 048
     Dates: start: 20140327, end: 20141208

REACTIONS (2)
  - Brain neoplasm malignant [None]
  - Malignant neoplasm progression [None]

NARRATIVE: CASE EVENT DATE: 20141208
